FAERS Safety Report 6836047-5 (Version None)
Quarter: 2010Q3

REPORT INFORMATION
  Report Type: 
  Country: None (occurrence: None)
  Receive Date: 20100713
  Receipt Date: 20100705
  Transmission Date: 20110219
  Serious: Yes (Hospitalization)
  Sender: FDA-Public Use
  Company Number: B0664976A

PATIENT
  Age: 78 Year
  Sex: Male

DRUGS (2)
  1. NABUCOX [Suspect]
     Indication: SCIATICA
     Dosage: 500MG FOUR TIMES PER DAY
     Route: 048
     Dates: start: 20100425, end: 20100501
  2. ALLOPURINOL [Concomitant]

REACTIONS (1)
  - PURPURA [None]
